FAERS Safety Report 8113513-6 (Version None)
Quarter: 2012Q1

REPORT INFORMATION
  Report Type: 
  Country: None (occurrence: None)
  Receive Date: 20120203
  Receipt Date: 20120127
  Transmission Date: 20120608
  Serious: Yes (Hospitalization, Other)
  Sender: FDA-Public Use
  Company Number: JP-CELGENEUS-087-21880-10113126

PATIENT
  Sex: Male

DRUGS (18)
  1. REVLIMID [Suspect]
     Dosage: 15 MILLIGRAM
     Route: 048
     Dates: start: 20110301, end: 20110321
  2. REVLIMID [Suspect]
     Dosage: 15 MILLIGRAM
     Route: 048
     Dates: start: 20110524, end: 20110613
  3. SULFAMETHOXAZOLE [Concomitant]
     Indication: PROPHYLAXIS
     Dosage: 1 TABLET
     Route: 048
  4. ASPIRIN [Concomitant]
     Indication: PROPHYLAXIS
     Dosage: 100 MILLIGRAM
     Route: 048
  5. SIGMART [Concomitant]
     Indication: ANGINA PECTORIS
     Dosage: 10 MILLIGRAM
     Route: 048
  6. REVLIMID [Suspect]
     Dosage: 25 MILLIGRAM
     Route: 048
     Dates: start: 20101230, end: 20110118
  7. CONIEL [Concomitant]
     Indication: HYPERTENSION
     Dosage: 8 MILLIGRAM
     Route: 048
  8. REVLIMID [Suspect]
     Dosage: 25 MILLIGRAM
     Route: 048
     Dates: start: 20110201, end: 20110219
  9. REVLIMID [Suspect]
     Dosage: 15 MILLIGRAM
     Route: 048
     Dates: start: 20110220, end: 20110221
  10. REVLIMID [Suspect]
     Indication: MULTIPLE MYELOMA
     Dosage: 25 MILLIGRAM
     Route: 048
     Dates: start: 20101007, end: 20101021
  11. REVLIMID [Suspect]
     Dosage: 15 MILLIGRAM
     Route: 048
     Dates: start: 20110426, end: 20110516
  12. PREDNISOLONE [Concomitant]
     Indication: MULTIPLE MYELOMA
     Dosage: 20 MILLIGRAM
     Route: 048
     Dates: start: 20110808
  13. DEXAMETHASONE [Concomitant]
     Indication: MULTIPLE MYELOMA
     Dosage: 19 MILLIGRAM
     Route: 041
     Dates: start: 20101013, end: 20101013
  14. GABAPENTIN [Concomitant]
     Dosage: 400 MILLIGRAM
     Route: 048
  15. CONIEL [Concomitant]
     Indication: ANGINA PECTORIS
  16. ASPIRIN [Concomitant]
     Indication: ANGINA PECTORIS
  17. CARVEDILOL [Concomitant]
     Indication: ANGINA PECTORIS
     Dosage: 2.5 MILLIGRAM
     Route: 048
  18. REVLIMID [Suspect]
     Dosage: 15 MILLIGRAM
     Route: 048
     Dates: start: 20110329, end: 20110418

REACTIONS (3)
  - TUBULOINTERSTITIAL NEPHRITIS [None]
  - CONSTIPATION [None]
  - SEPSIS [None]
